FAERS Safety Report 5247199-5 (Version None)
Quarter: 2007Q1

REPORT INFORMATION
  Report Type: 
  Country: None (occurrence: None)
  Receive Date: 20070221
  Receipt Date: 20070214
  Transmission Date: 20070707
  Serious: Yes (Other)
  Sender: FDA-Public Use
  Company Number: 1022556-2007-00037

PATIENT
  Sex: Female

DRUGS (1)
  1. UNISOM [Suspect]
     Indication: SLEEP DISORDER
     Dosage: 2 TABLETS
     Dates: start: 20070214

REACTIONS (2)
  - DIZZINESS [None]
  - DYSPNOEA [None]
